FAERS Safety Report 5374625-3 (Version None)
Quarter: 2007Q2

REPORT INFORMATION
  Report Type: 
  Country: None (occurrence: None)
  Receive Date: 20070627
  Receipt Date: 20070627
  Transmission Date: 20071010
  Serious: Yes (Hospitalization)
  Sender: FDA-Public Use
  Company Number: None

PATIENT
  Age: 63 Year
  Sex: Female

DRUGS (6)
  1. BEVACIZUMABG 10 MG/KG [Suspect]
     Dosage: D1+ D/15 OF EACH CYCLE
  2. ETOPOSIDE [Suspect]
     Dosage: 21 DAYS OF 28 DAY CYCLE
  3. ASPIRIN [Concomitant]
  4. ANTIBIOTIC (UNKNOWN TYPE AND DOSE FOR SINUS INFECTION) [Concomitant]
  5. DEXAMETHASONE [Concomitant]
  6. ATIVAN [Concomitant]

REACTIONS (5)
  - ANAEMIA [None]
  - DIARRHOEA [None]
  - HYPERGLYCAEMIA [None]
  - HYPOCALCAEMIA [None]
  - HYPONATRAEMIA [None]
